FAERS Safety Report 6460659-4 (Version None)
Quarter: 2009Q4

REPORT INFORMATION
  Report Type: 
  Country: None (occurrence: None)
  Receive Date: 20091125
  Receipt Date: 20091125
  Transmission Date: 20100525
  Serious: No
  Sender: FDA-Public Use
  Company Number: None

PATIENT
  Age: 47 Year
  Sex: Female
  Weight: 68.0396 kg

DRUGS (1)
  1. INTENSE SINUS RELIEF NASAL GEL [Suspect]
     Indication: PROPHYLAXIS
     Dosage: QD
     Dates: start: 20050101, end: 20090101

REACTIONS (4)
  - DYSGEUSIA [None]
  - HYPERPHAGIA [None]
  - INCORRECT DOSE ADMINISTERED [None]
  - NASAL MUCOSAL DISORDER [None]
